FAERS Safety Report 25408851 (Version 1)
Quarter: 2025Q2

REPORT INFORMATION
  Report Type: Spontaneous
  Country: NO (occurrence: NO)
  Receive Date: 20250607
  Receipt Date: 20250607
  Transmission Date: 20250717
  Serious: Yes (Death, Other)
  Sender: CELLTRION
  Company Number: None

PATIENT

DRUGS (2)
  1. INFLIXIMAB [Suspect]
     Active Substance: INFLIXIMAB
     Indication: Colitis ulcerative
     Route: 058
     Dates: start: 20240530
  2. PREDNISOLONE [Suspect]
     Active Substance: PREDNISOLONE
     Indication: Chronic obstructive pulmonary disease
     Route: 048
     Dates: start: 20240515, end: 20240630

REACTIONS (4)
  - Immunosuppression [Fatal]
  - Diffuse alveolar damage [Fatal]
  - Dyspnoea [Fatal]
  - Pneumocystis jirovecii pneumonia [Fatal]
